FAERS Safety Report 24576386 (Version 1)
Quarter: 2024Q4

REPORT INFORMATION
  Report Type: Spontaneous
  Country: US (occurrence: None)
  Receive Date: 20241103
  Receipt Date: 20241103
  Transmission Date: 20250114
  Serious: Yes (Disabling)
  Sender: Public
  Company Number: None

PATIENT
  Age: 64 Year
  Sex: Female
  Weight: 137.25 kg

DRUGS (15)
  1. LAGEVRIO [Suspect]
     Active Substance: MOLNUPIRAVIR
     Indication: SARS-CoV-2 test positive
     Dosage: OTHER QUANTITY : 4 CAPSULE(S);?FREQUENCY : EVERY 12 HOURS;?
     Route: 048
     Dates: start: 20241031
  2. XIIDRA [Concomitant]
     Active Substance: LIFITEGRAST
  3. MAXALT [Concomitant]
     Active Substance: RIZATRIPTAN BENZOATE
  4. LOSARTAN [Concomitant]
     Active Substance: LOSARTAN
  5. XARELTO [Concomitant]
     Active Substance: RIVAROXABAN
  6. GABAPENTIN [Concomitant]
     Active Substance: GABAPENTIN
  7. Prednisone Acetate Ophthalmic Solution [Concomitant]
  8. SOTALOL [Concomitant]
     Active Substance: SOTALOL\SOTALOL HYDROCHLORIDE
  9. PLAQUENIL [Concomitant]
     Active Substance: HYDROXYCHLOROQUINE SULFATE
  10. PROTONIX [Concomitant]
     Active Substance: PANTOPRAZOLE SODIUM
  11. CALCIUM [Concomitant]
     Active Substance: CALCIUM
  12. VITAMINS [Concomitant]
     Active Substance: VITAMINS
  13. FOLIC ACID [Concomitant]
     Active Substance: FOLIC ACID
  14. VITAMIN B12 [Concomitant]
     Active Substance: CYANOCOBALAMIN
  15. ALEVE [Concomitant]
     Active Substance: NAPROXEN SODIUM

REACTIONS (4)
  - Nausea [None]
  - Dyspepsia [None]
  - Cough [None]
  - Feeding disorder [None]

NARRATIVE: CASE EVENT DATE: 20241031
